FAERS Safety Report 5625492-1 (Version None)
Quarter: 2008Q1

REPORT INFORMATION
  Report Type: 
  Country: None (occurrence: None)
  Receive Date: 20080207
  Receipt Date: 20080129
  Transmission Date: 20080703
  Serious: Yes (Other)
  Sender: FDA-Public Use
  Company Number: B0505988A

PATIENT
  Sex: 0

DRUGS (2)
  1. CHLORAMBUCIL (FORMULATION UNKNOWN) (GENERIC) (CHLORAMBUCIL) [Suspect]
     Indication: CHRONIC LYMPHOCYTIC LEUKAEMIA
     Dosage: 40 MG/M2 / SEE DOSAGE TEXT / ORAL
     Route: 048
  2. ALLOPURINOL [Concomitant]

REACTIONS (1)
  - PNEUMONIA [None]
